FAERS Safety Report 4954747-9 (Version None)
Quarter: 2006Q1

REPORT INFORMATION
  Report Type: 
  Country: None (occurrence: None)
  Receive Date: 20060327
  Receipt Date: 20060321
  Transmission Date: 20060701
  Serious: Yes (Other)
  Sender: FDA-Public Use
  Company Number: GB-BOEHRINGER INGELHEIM PHARMACEUTICALS, INC.-2006-DE-01493GD

PATIENT

DRUGS (3)
  1. TIPRANAVIR [Suspect]
     Indication: HIV INFECTION
  2. T20 [Suspect]
     Indication: HIV INFECTION
  3. ANTI-HIV AGENTS [Suspect]
     Indication: HIV INFECTION

REACTIONS (2)
  - DRUG INEFFECTIVE [None]
  - VIRAL MUTATION IDENTIFIED [None]
